FAERS Safety Report 8105607-6 (Version None)
Quarter: 2012Q1

REPORT INFORMATION
  Report Type: 
  Country: None (occurrence: None)
  Receive Date: 20120201
  Receipt Date: 20120124
  Transmission Date: 20120608
  Serious: Yes (Hospitalization, Disabling, Other)
  Sender: FDA-Public Use
  Company Number: HR-ROCHE-674413

PATIENT
  Sex: Male
  Weight: 67.7 kg

DRUGS (21)
  1. MIRCERA [Suspect]
     Dosage: LAST DOSE PRIOR TO EVENT: 09 JULY 2010
     Route: 058
  2. MIRCERA [Suspect]
     Dosage: DATE OF LAST DOSE PRIOR TO SAE: 08 OCTOBER 2010
     Route: 058
  3. LISINOPRIL [Concomitant]
  4. CARVEDILOL [Concomitant]
  5. ISOSORBIDE MONONITRATE [Concomitant]
  6. CALCITRIOL [Concomitant]
  7. CALCIUM CARBONATE [Concomitant]
  8. LISINOPRIL [Concomitant]
  9. GLIQUIDONE [Concomitant]
  10. FUROSEMIDE [Concomitant]
  11. GLIQUIDONE [Concomitant]
  12. LACIDIPINE [Concomitant]
  13. SIMVASTATIN [Concomitant]
  14. SIMVASTATIN [Concomitant]
  15. MIRCERA [Suspect]
     Indication: NEPHROGENIC ANAEMIA
     Route: 058
  16. MIRCERA [Suspect]
     Dosage: LAST DOSE PRIOR TO SAE: 07 DECEMBER 2009
     Route: 058
  17. LACIDIPINE [Concomitant]
  18. ACETYLSALICYLIC ACID SRT [Concomitant]
  19. AMLODIPINE [Concomitant]
  20. PANTOPRAZOLE [Concomitant]
  21. FOLIC ACID [Concomitant]

REACTIONS (6)
  - ARTERIOVENOUS FISTULA THROMBOSIS [None]
  - DEVICE MALFUNCTION [None]
  - FEMORAL ARTERY OCCLUSION [None]
  - ISCHAEMIC STROKE [None]
  - PERIPHERAL ARTERIAL OCCLUSIVE DISEASE [None]
  - CAROTID ARTERY STENOSIS [None]
